FAERS Safety Report 5265185-6 (Version None)
Quarter: 2007Q1

REPORT INFORMATION
  Report Type: 
  Country: None (occurrence: None)
  Receive Date: 20061121
  Receipt Date: 20060929
  Transmission Date: 20070707
  Serious: No
  Sender: FDA-Public Use
  Company Number: TPA2006A01696

PATIENT
  Age: 22 Year
  Sex: Female
  Weight: 68.0396 kg

DRUGS (2)
  1. ROZEREM [Suspect]
     Indication: INSOMNIA
     Dosage: 8 MG, HS, PER ORAL
     Route: 048
     Dates: start: 20060926
  2. LUVOX [Concomitant]

REACTIONS (1)
  - MIDDLE INSOMNIA [None]
